FAERS Safety Report 7557984-2 (Version None)
Quarter: 2011Q2

REPORT INFORMATION
  Report Type: 
  Country: None (occurrence: None)
  Receive Date: 20110620
  Receipt Date: 20110610
  Transmission Date: 20111010
  Serious: Yes (Other)
  Sender: FDA-Public Use
  Company Number: US-US-EMD SERONO, INC.-7005631

PATIENT
  Sex: Female
  Weight: 78 kg

DRUGS (8)
  1. VALTREX [Concomitant]
  2. NEXIUM [Concomitant]
  3. REBIF [Suspect]
     Indication: MULTIPLE SCLEROSIS
     Route: 058
     Dates: start: 20100514
  4. DETROL [Concomitant]
  5. NORTRIPTYLINE [Concomitant]
  6. ZOLOFT [Concomitant]
  7. TRAMADOL HCL [Concomitant]
  8. GABAPENTIN [Concomitant]

REACTIONS (4)
  - ASTHENIA [None]
  - INFLUENZA LIKE ILLNESS [None]
  - VOMITING [None]
  - BLOOD POTASSIUM ABNORMAL [None]
